FAERS Safety Report 9964292 (Version 1)
Quarter: 2014Q1

REPORT INFORMATION
  Report Type: Spontaneous
  Country: CN (occurrence: CN)
  Receive Date: 20140305
  Receipt Date: 20140305
  Transmission Date: 20141002
  Serious: Yes (Other)
  Sender: FDA-Public Use
  Company Number: CN-BRISTOL-MYERS SQUIBB COMPANY-20309373

PATIENT
  Sex: 0

DRUGS (1)
  1. BARACLUDE [Suspect]

REACTIONS (1)
  - Gastrointestinal haemorrhage [Unknown]
